FAERS Safety Report 8432372-5 (Version None)
Quarter: 2012Q2

REPORT INFORMATION
  Report Type: 
  Country: None (occurrence: None)
  Receive Date: 20120613
  Receipt Date: 20120601
  Transmission Date: 20120825
  Serious: Yes (Hospitalization)
  Sender: FDA-Public Use
  Company Number: US-ELI_LILLY_AND_COMPANY-US201204009455

PATIENT
  Sex: Female

DRUGS (2)
  1. FORTEO [Suspect]
     Indication: OSTEOPOROSIS
     Dosage: UNK
     Dates: start: 20120401
  2. CALCIUM CARBONATE [Concomitant]
     Dosage: UNK, UNKNOWN

REACTIONS (8)
  - PAIN [None]
  - DYSPNOEA [None]
  - PNEUMOTHORAX [None]
  - HAND FRACTURE [None]
  - RIB FRACTURE [None]
  - INJECTION SITE ERYTHEMA [None]
  - CLAVICLE FRACTURE [None]
  - ACCIDENT [None]
